FAERS Safety Report 6306770-X (Version None)
Quarter: 2009Q3

REPORT INFORMATION
  Report Type: 
  Country: None (occurrence: None)
  Receive Date: 20090812
  Receipt Date: 20090804
  Transmission Date: 20100115
  Serious: Yes (Hospitalization)
  Sender: FDA-Public Use
  Company Number: GB-JNJFOC-20090801792

PATIENT
  Sex: Male

DRUGS (1)
  1. BENZOCAINE/TYROTHRICIN [Suspect]
     Indication: OROPHARYNGEAL PAIN
     Route: 048

REACTIONS (2)
  - ACCIDENTAL OVERDOSE [None]
  - HEART RATE DECREASED [None]
